FAERS Safety Report 9541928 (Version 1)
Quarter: 2013Q3

REPORT INFORMATION
  Report Type: Spontaneous
  Country: FR (occurrence: FR)
  Receive Date: 20130923
  Receipt Date: 20130923
  Transmission Date: 20140515
  Serious: Yes (Hospitalization)
  Sender: FDA-Public Use
  Company Number: PHHY2013FR104283

PATIENT
  Age: 72 Year
  Sex: Female

DRUGS (9)
  1. ACLASTA [Suspect]
     Indication: OSTEOPOROSIS
     Dosage: 5 MG ONCE
     Route: 042
     Dates: start: 20081111
  2. AVLOCARDYL [Concomitant]
     Dosage: UNK
  3. TOPALGIC//TRAMADOL HYDROCHLORIDE [Concomitant]
     Dosage: UNK
  4. DUROGESIC [Concomitant]
     Dosage: UNK
  5. MOPRAL [Concomitant]
     Dosage: UNK
  6. HYDROCORTISONE [Concomitant]
     Dosage: UNK
  7. DIFFU K [Concomitant]
     Dosage: UNK
  8. TANAKAN [Concomitant]
     Dosage: UNK
  9. CACIT D3 [Concomitant]
     Dosage: UNK

REACTIONS (3)
  - Disorientation [Recovered/Resolved]
  - Hyperthermia [Recovered/Resolved]
  - Vomiting [Recovered/Resolved]
